FAERS Safety Report 7313772-3 (Version None)
Quarter: 2011Q1

REPORT INFORMATION
  Report Type: 
  Country: None (occurrence: None)
  Receive Date: 20110225
  Receipt Date: 20110220
  Transmission Date: 20110831
  Serious: Yes (Hospitalization)
  Sender: FDA-Public Use
  Company Number: US-PFIZER INC-2011037086

PATIENT
  Sex: Male
  Weight: 97.506 kg

DRUGS (8)
  1. BUPROPION [Concomitant]
     Dosage: UNK
  2. ASCORBIC ACID [Concomitant]
     Dosage: UNK
  3. LOVENOX [Concomitant]
     Dosage: UNK
  4. TRAZODONE [Concomitant]
     Dosage: UNK
  5. CELEBREX [Suspect]
     Indication: KNEE OPERATION
     Dosage: 200 MG, DAILY
     Route: 048
     Dates: start: 20101217, end: 20101220
  6. ATENOLOL [Concomitant]
     Dosage: UNK
  7. MULTI-VITAMINS [Concomitant]
     Dosage: UNK
  8. COUMADIN [Concomitant]
     Dosage: UNK

REACTIONS (3)
  - MALAISE [None]
  - HAEMORRHAGE [None]
  - ULCER [None]
